FAERS Safety Report 9789245 (Version 3)
Quarter: 2014Q1

REPORT INFORMATION
  Report Type: Report from Study
  Country: US (occurrence: US)
  Receive Date: 20131230
  Receipt Date: 20140122
  Transmission Date: 20141002
  Serious: Yes (Hospitalization, Other)
  Sender: FDA-Public Use
  Company Number: US-BRISTOL-MYERS SQUIBB COMPANY-16862195

PATIENT
  Age: 48 Year
  Sex: Female
  Weight: 64.09 kg

DRUGS (1)
  1. IPILIMUMAB [Suspect]
     Indication: MALIGNANT MELANOMA
     Dosage: NO OF DOSES-4.  640 MG TOTAL?ON 24,36,48+60?LAST DOSE-25JUL12; REMOVED FROM PROTOCOL ON 13AUG12
     Route: 042
     Dates: start: 20120612

REACTIONS (3)
  - Colitis [Recovered/Resolved]
  - Diarrhoea [Recovered/Resolved]
  - Hypophosphataemia [Recovered/Resolved]
